FAERS Safety Report 9046506 (Version 1)
Quarter: 2013Q1

REPORT INFORMATION
  Report Type: Spontaneous
  Country: US (occurrence: None)
  Receive Date: 20130128
  Receipt Date: 20130128
  Transmission Date: 20140127
  Serious: Yes (Death)
  Sender: FDA-Public Use
  Company Number: None

PATIENT
  Age: 22 Year
  Sex: Male

DRUGS (1)
  1. CHANTIX 0.5MG [Suspect]
     Indication: SMOKING CESSATION THERAPY
     Route: 048
     Dates: start: 20130101, end: 20130122

REACTIONS (6)
  - Cardio-respiratory arrest [None]
  - Suicide attempt [None]
  - Foreign body [None]
  - Endotracheal intubation complication [None]
  - Ventricular fibrillation [None]
  - Treatment failure [None]
